FAERS Safety Report 6229721-5 (Version None)
Quarter: 2009Q2

REPORT INFORMATION
  Report Type: 
  Country: None (occurrence: None)
  Receive Date: 20090615
  Receipt Date: 20090605
  Transmission Date: 20091009
  Serious: Yes (Other)
  Sender: FDA-Public Use
  Company Number: JP-MERCK-0906USA01781

PATIENT
  Age: 44 Year
  Sex: Female

DRUGS (2)
  1. ZETIA [Suspect]
     Indication: DYSLIPIDAEMIA
     Route: 048
     Dates: start: 20090508, end: 20090601
  2. AMLODIPINE BESYLATE [Concomitant]
     Route: 065
     Dates: start: 20081201

REACTIONS (1)
  - DRUG ERUPTION [None]
